FAERS Safety Report 24369203 (Version 2)
Quarter: 2024Q4

REPORT INFORMATION
  Report Type: Spontaneous
  Country: US (occurrence: US)
  Receive Date: 20240927
  Receipt Date: 20241225
  Transmission Date: 20250115
  Serious: No
  Sender: SANOFI AVENTIS
  Company Number: US-SA-2024SA273643

PATIENT
  Age: 24 Year
  Sex: Female

DRUGS (1)
  1. CEREZYME [Suspect]
     Active Substance: IMIGLUCERASE
     Indication: Gaucher^s disease
     Dosage: 3600 U, QOW
     Route: 063
     Dates: start: 202402

REACTIONS (2)
  - Weight increased [Unknown]
  - Maternal exposure during breast feeding [Unknown]

NARRATIVE: CASE EVENT DATE: 20240101
